FAERS Safety Report 19477609 (Version 1)
Quarter: 2021Q2

REPORT INFORMATION
  Report Type: Spontaneous
  Country: US (occurrence: US)
  Receive Date: 20210630
  Receipt Date: 20210630
  Transmission Date: 20210717
  Serious: Yes (Other)
  Sender: FDA-Public Use
  Company Number: US-UCBSA-2021030194

PATIENT
  Sex: Female
  Weight: 56 kg

DRUGS (3)
  1. CYCLOSPORINE. [Concomitant]
     Active Substance: CYCLOSPORINE
     Indication: PRODUCT USED FOR UNKNOWN INDICATION
  2. PREDNISONE. [Suspect]
     Active Substance: PREDNISONE
     Indication: AUTOIMMUNE PANCREATITIS
  3. CIMZIA [Suspect]
     Active Substance: CERTOLIZUMAB PEGOL
     Indication: PSORIASIS
     Dosage: 200 MILLIGRAM, EV 2 WEEKS(QOW)
     Route: 058

REACTIONS (3)
  - Arthralgia [Not Recovered/Not Resolved]
  - Therapeutic response decreased [Unknown]
  - Psoriasis [Not Recovered/Not Resolved]
